FAERS Safety Report 8919024 (Version 3)
Quarter: 2014Q1

REPORT INFORMATION
  Report Type: Spontaneous
  Country: GB (occurrence: GB)
  Receive Date: 20121121
  Receipt Date: 20140311
  Transmission Date: 20141002
  Serious: Yes (Hospitalization, Other)
  Sender: FDA-Public Use
  Company Number: GB-PFIZER INC-2012289784

PATIENT
  Age: 62 Year
  Sex: Male

DRUGS (1)
  1. RAMIPRIL [Suspect]
     Indication: CEREBROVASCULAR ACCIDENT
     Dosage: UNK
     Route: 065
     Dates: start: 2007

REACTIONS (7)
  - Angioedema [Recovered/Resolved]
  - Obstructive airways disorder [Recovered/Resolved]
  - Drooling [Recovered/Resolved]
  - Tongue oedema [Recovered/Resolved]
  - Epiglottic oedema [Recovered/Resolved]
  - Respiratory tract oedema [Recovered/Resolved]
  - Speech disorder [Recovered/Resolved]
